FAERS Safety Report 24894377 (Version 1)
Quarter: 2025Q1

REPORT INFORMATION
  Report Type: Spontaneous
  Country: US (occurrence: None)
  Receive Date: 20250127
  Receipt Date: 20250127
  Transmission Date: 20250409
  Serious: Yes (Other)
  Sender: FDA-CTU
  Company Number: None

PATIENT

DRUGS (1)
  1. KETAMINE [Suspect]
     Active Substance: KETAMINE
     Indication: Product used for unknown indication
     Route: 050
     Dates: start: 20240422, end: 20241118

REACTIONS (7)
  - Insurance issue [None]
  - Epistaxis [None]
  - Sinus disorder [None]
  - Scab [None]
  - Dyspnoea [None]
  - Hair disorder [None]
  - Therapeutic response changed [None]

NARRATIVE: CASE EVENT DATE: 20240422
